FAERS Safety Report 4295678-X (Version None)
Quarter: 2004Q1

REPORT INFORMATION
  Report Type: 
  Country: None (occurrence: None)
  Receive Date: 20040216
  Receipt Date: 20030811
  Transmission Date: 20041129
  Serious: No
  Sender: FDA-Public Use
  Company Number: US-GLAXOSMITHKLINE-A0420612A

PATIENT
  Age: 35 Year
  Sex: Female

DRUGS (2)
  1. PAXIL [Suspect]
     Indication: DEPRESSION
     Dosage: 10MG PER DAY
     Route: 048
     Dates: start: 20030101, end: 20030101
  2. PAXIL [Suspect]
     Dosage: 4ML PER DAY
     Route: 048
     Dates: end: 20030801

REACTIONS (4)
  - ALOPECIA [None]
  - ANXIETY [None]
  - HEART RATE INCREASED [None]
  - RESPIRATORY RATE INCREASED [None]
